FAERS Safety Report 21870968 (Version 1)
Quarter: 2023Q1

REPORT INFORMATION
  Report Type: Spontaneous
  Country: US (occurrence: US)
  Receive Date: 20230117
  Receipt Date: 20230117
  Transmission Date: 20230418
  Serious: Yes (Other)
  Sender: FDA-Public Use
  Company Number: US-drreddys-SPO/USA/23/0159806

PATIENT
  Age: 77 Year
  Sex: Male

DRUGS (17)
  1. LENALIDOMIDE [Suspect]
     Active Substance: LENALIDOMIDE
     Indication: Plasma cell myeloma in remission
     Dosage: BY MOUTH DAILY ON DAYS 1-21 OF EACH 28 DAY CYCLE
     Route: 048
     Dates: start: 202211
  2. ONDANSETRON [Concomitant]
     Active Substance: ONDANSETRON
     Indication: Product used for unknown indication
     Dosage: TBD
  3. GABAPENTIN TAB 25MG [Concomitant]
     Indication: Product used for unknown indication
  4. ASPIRIN CHE 81MG [Concomitant]
     Indication: Product used for unknown indication
     Dosage: CHE
  5. ATENOLOL TAB 50MG [Concomitant]
     Indication: Product used for unknown indication
  6. BUSPIRONE HC TAB 30MG [Concomitant]
     Indication: Product used for unknown indication
  7. DAPSONE TAB 25MG [Concomitant]
     Indication: Product used for unknown indication
  8. DEXAMETHASONE [Concomitant]
     Active Substance: DEXAMETHASONE
     Indication: Product used for unknown indication
  9. FLOMAX [Concomitant]
     Active Substance: TAMSULOSIN HYDROCHLORIDE
     Indication: Product used for unknown indication
  10. LOVASTATIN TAB 40MG [Concomitant]
     Indication: Product used for unknown indication
  11. MIRALAX POW  17GM/SCOOP [Concomitant]
     Indication: Product used for unknown indication
     Dosage: 17 GM/SCOOP
  12. NORVASC TAB 5MG [Concomitant]
     Indication: Product used for unknown indication
  13. OXYCODONE H TAB 15MG [Concomitant]
     Indication: Product used for unknown indication
  14. TYLENOL CAP 325MG [Concomitant]
     Indication: Product used for unknown indication
  15. VITAMIN D TAB 25 MCG(1000 [Concomitant]
     Indication: Product used for unknown indication
  16. XANAX TAB 0.5MG [Concomitant]
     Indication: Product used for unknown indication
  17. ACYCLOVIR TAB 800MG [Concomitant]
     Indication: Product used for unknown indication

REACTIONS (1)
  - Neuropathy peripheral [Not Recovered/Not Resolved]
